FAERS Safety Report 25386884 (Version 1)
Quarter: 2025Q2

REPORT INFORMATION
  Report Type: Spontaneous
  Country: US (occurrence: US)
  Receive Date: 20250602
  Receipt Date: 20250602
  Transmission Date: 20250717
  Serious: No
  Sender: PFIZER
  Company Number: US-PFIZER INC-202500112148

PATIENT
  Age: 65 Year
  Sex: Female

DRUGS (1)
  1. IBRANCE [Suspect]
     Active Substance: PALBOCICLIB

REACTIONS (4)
  - Osteoporosis [Recovering/Resolving]
  - Insomnia [Recovering/Resolving]
  - Rash [Recovering/Resolving]
  - Hepatic enzyme increased [Recovering/Resolving]
